FAERS Safety Report 16570335 (Version 1)
Quarter: 2019Q3

REPORT INFORMATION
  Report Type: Report from Study
  Country: US (occurrence: US)
  Receive Date: 20190715
  Receipt Date: 20190715
  Transmission Date: 20191004
  Serious: No
  Sender: FDA-Public Use
  Company Number: PHEH2019US029261

PATIENT
  Sex: Female

DRUGS (1)
  1. GILENYA [Suspect]
     Active Substance: FINGOLIMOD HYDROCHLORIDE
     Indication: MULTIPLE SCLEROSIS
     Dosage: 0.5 MG, QD
     Route: 048
     Dates: start: 20190514

REACTIONS (6)
  - Headache [Unknown]
  - Dyspnoea [Unknown]
  - Hypoaesthesia [Unknown]
  - Fatigue [Unknown]
  - Ocular discomfort [Unknown]
  - Back pain [Unknown]
